FAERS Safety Report 6284026-1 (Version None)
Quarter: 2009Q3

REPORT INFORMATION
  Report Type: 
  Country: None (occurrence: None)
  Receive Date: 20090727
  Receipt Date: 20090717
  Transmission Date: 20100115
  Serious: Yes (Death, Hospitalization)
  Sender: FDA-Public Use
  Company Number: US-BIOGENIDEC-2006BI014927

PATIENT
  Age: 59 Year
  Sex: Male

DRUGS (14)
  1. AVONEX [Suspect]
     Indication: MULTIPLE SCLEROSIS
     Route: 030
     Dates: start: 19961201
  2. AVONEX [Suspect]
     Route: 030
     Dates: end: 20050101
  3. AVONEX [Suspect]
     Route: 030
     Dates: start: 20050101
  4. REBIF [Concomitant]
     Indication: MULTIPLE SCLEROSIS
     Dates: start: 20050301, end: 20050801
  5. CELEBREX [Concomitant]
     Indication: MULTIPLE SCLEROSIS
  6. FLUOXETINE HCL [Concomitant]
     Indication: MULTIPLE SCLEROSIS
  7. INDERAL [Concomitant]
     Indication: MULTIPLE SCLEROSIS
  8. KADIAN [Concomitant]
     Indication: MULTIPLE SCLEROSIS
  9. LAMICTAL [Concomitant]
     Indication: MULTIPLE SCLEROSIS
  10. NAMENDA [Concomitant]
     Indication: MULTIPLE SCLEROSIS
  11. PROVIGIL [Concomitant]
     Indication: MULTIPLE SCLEROSIS
  12. RITALIN [Concomitant]
     Indication: MULTIPLE SCLEROSIS
  13. WELLBUTRIN SR [Concomitant]
     Indication: MULTIPLE SCLEROSIS
  14. ZOMETA [Concomitant]
     Indication: ROUTINE HEALTH MAINTENANCE

REACTIONS (7)
  - ANAL CANCER METASTATIC [None]
  - ARTHRALGIA [None]
  - BLOOD CHOLESTEROL INCREASED [None]
  - CONFUSIONAL STATE [None]
  - GASTROOESOPHAGEAL REFLUX DISEASE [None]
  - HYPERTONIC BLADDER [None]
  - LUNG CANCER METASTATIC [None]
